FAERS Safety Report 15093468 (Version 1)
Quarter: 2018Q2

REPORT INFORMATION
  Report Type: Spontaneous
  Country: FR (occurrence: FR)
  Receive Date: 20180629
  Receipt Date: 20180629
  Transmission Date: 20180711
  Serious: Yes (Hospitalization)
  Sender: FDA-Public Use
  Company Number: FR-TEVA-2018-FR-916216

PATIENT
  Age: 83 Year
  Sex: Male
  Weight: 91 kg

DRUGS (8)
  1. STRESAM [Concomitant]
     Active Substance: ETIFOXINE
  2. LEVOTHYROX [Concomitant]
     Active Substance: LEVOTHYROXINE
  3. LASILIX SPECIAL 500 MG, COMPRIM? S?CABLE [Suspect]
     Active Substance: FUROSEMIDE
     Indication: PRODUCT USED FOR UNKNOWN INDICATION
     Dosage: 125 MILLIGRAM DAILY;
     Route: 048
     Dates: start: 20180329, end: 20180518
  4. PULMICORT TURBUHALER [Concomitant]
     Active Substance: BUDESONIDE
  5. KALEORID [Concomitant]
     Active Substance: POTASSIUM CHLORIDE
  6. OMIX LP 0,4 MG, MICROGRANULES ? LIB?RATION PROLONG?E EN G?LULE [Concomitant]
  7. ALLOPURINOL. [Suspect]
     Active Substance: ALLOPURINOL
     Indication: GOUT
     Dosage: 200 MILLIGRAM DAILY;
     Route: 048
     Dates: end: 20180511
  8. IPRATROPIUM BROMIDE\FENOTEROL HYDROBROMIDE [Concomitant]
     Active Substance: FENOTEROL HYDROBROMIDE\IPRATROPIUM BROMIDE

REACTIONS (1)
  - Vascular purpura [Recovering/Resolving]

NARRATIVE: CASE EVENT DATE: 201804
